FAERS Safety Report 24059733 (Version 8)
Quarter: 2025Q4

REPORT INFORMATION
  Report Type: Spontaneous
  Country: US (occurrence: US)
  Receive Date: 20240708
  Receipt Date: 20251114
  Transmission Date: 20260117
  Serious: Yes (Other)
  Sender: NOVARTIS
  Company Number: US-002147023-NVSC2024US136615

PATIENT
  Age: 29 Year
  Sex: Female
  Weight: 85.261 kg

DRUGS (15)
  1. VALSARTAN [Suspect]
     Active Substance: VALSARTAN
     Indication: Hypertension
     Dosage: 40 MG (ABOUT 2 YEARS)
     Route: 065
  2. AMOXICILLIN [Suspect]
     Active Substance: AMOXICILLIN
     Indication: Tooth disorder
     Dosage: UNK
     Route: 065
  3. PROPRANOLOL [Suspect]
     Active Substance: PROPRANOLOL HYDROCHLORIDE
     Indication: Palpitations
     Dosage: 60 MG
     Route: 065
  4. PROPRANOLOL [Suspect]
     Active Substance: PROPRANOLOL HYDROCHLORIDE
     Indication: Anxiety
     Dosage: 10 MG
     Route: 065
  5. PROPRANOLOL [Suspect]
     Active Substance: PROPRANOLOL HYDROCHLORIDE
     Indication: Blood pressure measurement
  6. PROPRANOLOL [Suspect]
     Active Substance: PROPRANOLOL HYDROCHLORIDE
     Indication: Product used for unknown indication
  7. PRISTIQ EXTENDED-RELEASE [Suspect]
     Active Substance: DESVENLAFAXINE SUCCINATE
     Indication: Product used for unknown indication
     Dosage: UNK (3 DAYS)
     Route: 065
  8. PRISTIQ EXTENDED-RELEASE [Suspect]
     Active Substance: DESVENLAFAXINE SUCCINATE
     Dosage: 25 MG (TAKING FOR MONTH)
     Route: 065
  9. PRISTIQ EXTENDED-RELEASE [Suspect]
     Active Substance: DESVENLAFAXINE SUCCINATE
     Dosage: 50 MG, QD 25 MG, BID; 25 MG (3 DAYS)
     Route: 065
  10. PRISTIQ EXTENDED-RELEASE [Suspect]
     Active Substance: DESVENLAFAXINE SUCCINATE
     Dosage: 50 MG
     Route: 065
  11. BUSPAR [Suspect]
     Active Substance: BUSPIRONE HYDROCHLORIDE
     Indication: Product used for unknown indication
     Dosage: 10 MG, QD (5 MG, BID (LITTLE OVER A MONTH) )
     Route: 065
  12. BUSPAR [Concomitant]
     Active Substance: BUSPIRONE HYDROCHLORIDE
     Indication: Product used for unknown indication
     Dosage: 5 MG, BID (LITTLE OVER A MONTH)
     Route: 065
  13. PROZAC [Concomitant]
     Active Substance: FLUOXETINE HYDROCHLORIDE
     Indication: Product used for unknown indication
     Dosage: 20 MG
     Route: 065
  14. VITAMIN D3 [Concomitant]
     Active Substance: CHOLECALCIFEROL
     Indication: Apnoea
     Dosage: 5000IU (TAKING FOR A FEW MONTHS)
     Route: 065
  15. FISH OIL [Concomitant]
     Active Substance: FISH OIL
     Indication: Apnoea
     Dosage: 1000 MG (FOR TWO DAYS)
     Route: 065

REACTIONS (43)
  - Myocardial infarction [Unknown]
  - Anxiety [Unknown]
  - Arthralgia [Unknown]
  - Sleep disorder [Unknown]
  - Blood cholesterol increased [Unknown]
  - Obsessive-compulsive disorder [Unknown]
  - Generalised anxiety disorder [Unknown]
  - Heart rate increased [Unknown]
  - Muscle fatigue [Unknown]
  - Feeling abnormal [Unknown]
  - Post-traumatic stress disorder [Unknown]
  - Blood triglycerides increased [Unknown]
  - Malaise [Unknown]
  - Micturition disorder [Unknown]
  - Hypertension [Unknown]
  - Skin burning sensation [Unknown]
  - Panic attack [Unknown]
  - Pain in extremity [Unknown]
  - Peripheral swelling [Recovering/Resolving]
  - Contusion [Recovering/Resolving]
  - Panic attack [Unknown]
  - Musculoskeletal stiffness [Unknown]
  - Illness [Unknown]
  - Asthenopia [Unknown]
  - Pain [Unknown]
  - Sunburn [Not Recovered/Not Resolved]
  - Depersonalisation/derealisation disorder [Unknown]
  - Gastrointestinal disorder [Unknown]
  - Headache [Unknown]
  - COVID-19 [Recovering/Resolving]
  - Burning sensation [Unknown]
  - Emotional distress [Unknown]
  - Sleep apnoea syndrome [Unknown]
  - Myalgia [Unknown]
  - Fatigue [Unknown]
  - Asthenia [Unknown]
  - Chest pain [Unknown]
  - Fatigue [Unknown]
  - Dyspnoea [Unknown]
  - Diarrhoea [Unknown]
  - Nausea [Unknown]
  - Dizziness [Unknown]
  - Palpitations [Unknown]

NARRATIVE: CASE EVENT DATE: 20240101
